FAERS Safety Report 13078539 (Version 1)
Quarter: 2017Q1

REPORT INFORMATION
  Report Type: Spontaneous
  Country: FR (occurrence: FR)
  Receive Date: 20170102
  Receipt Date: 20170102
  Transmission Date: 20170428
  Serious: No
  Sender: FDA-Public Use
  Company Number: FR-FRESENIUS KABI-FK201610333

PATIENT
  Age: 10 Year
  Sex: Male
  Weight: 30 kg

DRUGS (6)
  1. FOSFOMYCINE [Concomitant]
     Active Substance: FOSFOMYCIN
     Indication: SINUSITIS
     Route: 065
  2. CLINDAMYCIN. [Suspect]
     Active Substance: CLINDAMYCIN
     Indication: SINUSITIS
     Route: 042
     Dates: start: 20161012, end: 20161026
  3. AMOXICILLIN/CLAVULANIC ACID [Concomitant]
     Active Substance: AMOXICILLIN\CLAVULANIC ACID
     Indication: SINUSITIS
     Route: 065
  4. CEFOTAXIME [Suspect]
     Active Substance: CEFOTAXIME SODIUM
     Indication: SINUSITIS
     Route: 042
     Dates: start: 20161009, end: 20161030
  5. CEFTRIAXONE. [Concomitant]
     Active Substance: CEFTRIAXONE
     Indication: SINUSITIS
     Route: 065
  6. AMIKACINE [Concomitant]
     Active Substance: AMIKACIN
     Indication: SINUSITIS
     Route: 065

REACTIONS (4)
  - Hepatocellular injury [Recovering/Resolving]
  - Neutropenia [Recovering/Resolving]
  - Leukopenia [Recovered/Resolved]
  - Rash maculo-papular [Recovered/Resolved]

NARRATIVE: CASE EVENT DATE: 20161028
